FAERS Safety Report 25814731 (Version 1)
Quarter: 2025Q3

REPORT INFORMATION
  Report Type: Report from Study
  Country: US (occurrence: US)
  Receive Date: 20250917
  Receipt Date: 20250917
  Transmission Date: 20251020
  Serious: No
  Sender: SANDOZ
  Company Number: US-SANDOZ-SDZ2025US066299

PATIENT
  Age: 16 Year
  Sex: Male

DRUGS (2)
  1. OMNITROPE [Suspect]
     Active Substance: SOMATROPIN
     Indication: Product used for unknown indication
     Dosage: 40 MG, ONCE DAILY
     Route: 058
     Dates: start: 20250910, end: 20250910
  2. OMNITROPE [Suspect]
     Active Substance: SOMATROPIN
     Indication: Product used for unknown indication
     Dosage: 40 MG, ONCE DAILY
     Route: 058
     Dates: start: 20250910, end: 20250910

REACTIONS (2)
  - Circumstance or information capable of leading to device use error [Unknown]
  - Device leakage [Unknown]

NARRATIVE: CASE EVENT DATE: 20250910
